FAERS Safety Report 20597718 (Version 2)
Quarter: 2022Q1

REPORT INFORMATION
  Report Type: Spontaneous
  Country: US (occurrence: None)
  Receive Date: 20220315
  Receipt Date: 20220316
  Transmission Date: 20220424
  Serious: No
  Sender: FDA-Public Use
  Company Number: US-ROCHE-2922886

PATIENT
  Age: 31 Year
  Sex: Female

DRUGS (5)
  1. XOLAIR [Suspect]
     Active Substance: OMALIZUMAB
     Indication: Idiopathic urticaria
     Dosage: STRENGTH: 150MG/ML
     Route: 058
     Dates: start: 20210825
  2. XOLAIR [Suspect]
     Active Substance: OMALIZUMAB
  3. XOLAIR [Suspect]
     Active Substance: OMALIZUMAB
  4. EMGALITY [Concomitant]
     Active Substance: GALCANEZUMAB-GNLM
  5. VALIUM [Concomitant]
     Active Substance: DIAZEPAM

REACTIONS (6)
  - Off label use [Unknown]
  - Abdominal distension [Unknown]
  - Swelling face [Recovered/Resolved]
  - Swelling [Unknown]
  - Vertigo [Unknown]
  - Abdominal distension [Recovered/Resolved]

NARRATIVE: CASE EVENT DATE: 20210930
